FAERS Safety Report 14694555 (Version 9)
Quarter: 2018Q4

REPORT INFORMATION
  Report Type: Spontaneous
  Country: ES (occurrence: ES)
  Receive Date: 20180329
  Receipt Date: 20181015
  Transmission Date: 20190204
  Serious: Yes (Life-Threatening, Hospitalization, Other)
  Sender: FDA-Public Use
  Company Number: ES-UCBSA-2018012952

PATIENT
  Age: 74 Year
  Sex: Male

DRUGS (10)
  1. LACOSAMIDE. [Suspect]
     Active Substance: LACOSAMIDE
     Indication: OFF LABEL USE
  2. CARBAMAZEPINE. [Suspect]
     Active Substance: CARBAMAZEPINE
     Indication: TRIGEMINAL NEURALGIA
     Dosage: 200 MG/12 H
  3. NOLOTIL (METAMIZOLE MAGNESIUM) [Concomitant]
     Active Substance: METAMIZOLE MAGNESIUM
     Indication: ANALGESIC THERAPY
     Dosage: UNKNOWN DOSE
  4. CARBAMAZEPINE. [Suspect]
     Active Substance: CARBAMAZEPINE
     Dosage: ADJUSTING THE TREATMENT TO A DESCENDING REGIME
     Dates: end: 20170607
  5. ESLICARBAZEPINE [Suspect]
     Active Substance: ESLICARBAZEPINE
     Indication: TRIGEMINAL NEURALGIA
     Dosage: 400 MG, ONCE DAILY (QD), SINGLE NIGHT DOSE
     Dates: start: 201706
  6. PRIMPERAN [Concomitant]
     Active Substance: METOCLOPRAMIDE HYDROCHLORIDE
     Indication: ANALGESIC THERAPY
     Dosage: UNKNOWN DOSE
  7. CARBAMAZEPINA NORMON [Suspect]
     Active Substance: CARBAMAZEPINE
     Indication: TRIGEMINAL NEURALGIA
     Dosage: 200 MG/DAY
     Dates: start: 201706, end: 2017
  8. ENALAPRIL [Concomitant]
     Active Substance: ENALAPRIL
     Indication: PRODUCT USED FOR UNKNOWN INDICATION
     Dosage: 5 MG, 2X/DAY (BID)
  9. LACOSAMIDE. [Suspect]
     Active Substance: LACOSAMIDE
     Indication: TRIGEMINAL NEURALGIA
     Dosage: 100 MG, 2X/DAY (BID)
     Route: 042
     Dates: start: 201706
  10. TRAMADOL. [Concomitant]
     Active Substance: TRAMADOL
     Indication: ANALGESIC THERAPY
     Dosage: UNKNOWN DOSE

REACTIONS (4)
  - Atrioventricular block complete [Unknown]
  - Drug intolerance [Unknown]
  - Off label use [Unknown]
  - Cardio-respiratory arrest [Unknown]

NARRATIVE: CASE EVENT DATE: 20170612
